FAERS Safety Report 8192632-2 (Version None)
Quarter: 2012Q1

REPORT INFORMATION
  Report Type: 
  Country: None (occurrence: None)
  Receive Date: 20120308
  Receipt Date: 20120225
  Transmission Date: 20120608
  Serious: Yes (Hospitalization, Other)
  Sender: FDA-Public Use
  Company Number: US-SANOFI-AVENTIS-2012SA012789

PATIENT
  Age: 77 Year
  Sex: Female

DRUGS (3)
  1. SOLOSTAR [Suspect]
     Indication: TYPE 2 DIABETES MELLITUS
  2. LANTUS [Suspect]
     Indication: TYPE 2 DIABETES MELLITUS
     Dosage: DOSE:15 UNIT(S)
     Route: 058
  3. LANTUS [Suspect]
     Dosage: DOSE:30 UNIT(S)
     Route: 058

REACTIONS (2)
  - LOCALISED INFECTION [None]
  - INJECTION SITE HAEMORRHAGE [None]
